FAERS Safety Report 7272156-7 (Version None)
Quarter: 2011Q1

REPORT INFORMATION
  Report Type: 
  Country: None (occurrence: None)
  Receive Date: 20110131
  Receipt Date: 20110131
  Transmission Date: 20110831
  Serious: Yes (Other)
  Sender: FDA-Public Use
  Company Number: None

PATIENT
  Sex: Female
  Weight: 58.514 kg

DRUGS (1)
  1. LORAZEPAM [Suspect]
     Dosage: 1 MG IV
     Route: 042

REACTIONS (4)
  - AKATHISIA [None]
  - EXTRAPYRAMIDAL DISORDER [None]
  - PARADOXICAL DRUG REACTION [None]
  - SEROTONIN SYNDROME [None]
